FAERS Safety Report 8084937-0 (Version None)
Quarter: 2012Q1

REPORT INFORMATION
  Report Type: 
  Country: None (occurrence: None)
  Receive Date: 20120128
  Receipt Date: 20110330
  Transmission Date: 20120608
  Serious: No
  Sender: FDA-Public Use
  Company Number: US-ABBOTT-11P-163-0715554-00

PATIENT
  Sex: Female
  Weight: 71.732 kg

DRUGS (5)
  1. UNKNOWN MEDICATION [Concomitant]
     Indication: THYROID DISORDER
  2. UNKNOWN MEDICATION [Concomitant]
     Indication: URINARY INCONTINENCE
  3. UNKNOWN MEDICATION [Concomitant]
     Indication: NERVOUS SYSTEM DISORDER
  4. HUMIRA [Suspect]
     Indication: PSORIATIC ARTHROPATHY
     Dates: start: 20110215
  5. UNKNOWN MEDICATION [Concomitant]
     Indication: BLOOD PRESSURE

REACTIONS (2)
  - COUGH [None]
  - NASOPHARYNGITIS [None]
